FAERS Safety Report 10788247 (Version 2)
Quarter: 2015Q2

REPORT INFORMATION
  Report Type: Spontaneous
  Country: US (occurrence: US)
  Receive Date: 20150212
  Receipt Date: 20150415
  Transmission Date: 20150821
  Serious: Yes (Other)
  Sender: FDA-Public Use
  Company Number: US-ELI_LILLY_AND_COMPANY-US201502000184

PATIENT
  Age: 74 Year
  Sex: Male

DRUGS (15)
  1. PLAVIX [Concomitant]
     Active Substance: CLOPIDOGREL BISULFATE
  2. VITAMIN E                          /07493501/ [Concomitant]
  3. HUMALOG [Suspect]
     Active Substance: INSULIN LISPRO
     Indication: TYPE 2 DIABETES MELLITUS
     Dosage: UNK
     Route: 065
     Dates: start: 1990
  4. RENA-VITE [Concomitant]
     Active Substance: VITAMINS
  5. CALCIUM ACETATE. [Concomitant]
     Active Substance: CALCIUM ACETATE
  6. LANTUS [Concomitant]
     Active Substance: INSULIN GLARGINE
     Dosage: 18 U, UNK
  7. ASPIRIN                            /00002701/ [Concomitant]
     Active Substance: ASPIRIN
  8. VITAMIN D3 [Concomitant]
     Active Substance: CHOLECALCIFEROL
  9. VITAMIN D2 [Concomitant]
     Active Substance: ERGOCALCIFEROL
     Dosage: 50000 U, QOD
  10. ISOSORBIDE [Concomitant]
     Active Substance: ISOSORBIDE
  11. LITHIUM. [Suspect]
     Active Substance: LITHIUM
     Route: 065
  12. ABILIFY [Concomitant]
     Active Substance: ARIPIPRAZOLE
  13. RENVELA [Concomitant]
     Active Substance: SEVELAMER CARBONATE
  14. BENFOTIAMINE [Concomitant]
     Active Substance: BENFOTIAMINE
  15. MIDODRINE HCL [Concomitant]
     Active Substance: MIDODRINE HYDROCHLORIDE

REACTIONS (6)
  - Blood glucose increased [Unknown]
  - Chronic kidney disease [Unknown]
  - Medication error [Unknown]
  - Blood glucose decreased [Unknown]
  - Anxiety [Unknown]
  - Weight decreased [Unknown]

NARRATIVE: CASE EVENT DATE: 201409
